FAERS Safety Report 19036305 (Version 1)
Quarter: 2021Q1

REPORT INFORMATION
  Report Type: Spontaneous
  Country: GB (occurrence: GB)
  Receive Date: 20210322
  Receipt Date: 20210322
  Transmission Date: 20210420
  Serious: Yes (Other)
  Sender: FDA-Public Use
  Company Number: GB-CELLTRION INC.-2021GB003571

PATIENT

DRUGS (9)
  1. CISPLATIN. [Suspect]
     Active Substance: CISPLATIN
     Indication: PALLIATIVE CARE
     Dosage: 3 CYCLES
     Route: 065
     Dates: start: 2017, end: 201810
  2. CYCLOPHOSPHAMIDE. [Suspect]
     Active Substance: CYCLOPHOSPHAMIDE
     Indication: DIFFUSE LARGE B-CELL LYMPHOMA STAGE IV
     Dosage: 6 CYCLES
     Route: 065
  3. GEMCITABINE. [Suspect]
     Active Substance: GEMCITABINE
     Indication: PALLIATIVE CARE
     Dosage: 3 CYCLES
     Route: 065
     Dates: start: 2017, end: 201810
  4. RITUXIMAB (UNKNOWN) [Suspect]
     Active Substance: RITUXIMAB
     Indication: PALLIATIVE CARE
     Dosage: 3 CYCLES
     Route: 065
     Dates: start: 2017, end: 201810
  5. VINCRISTINE [Suspect]
     Active Substance: VINCRISTINE
     Indication: DIFFUSE LARGE B-CELL LYMPHOMA STAGE IV
     Dosage: 6 CYCLES
     Route: 065
  6. DOXORUBICIN [Suspect]
     Active Substance: DOXORUBICIN
     Indication: DIFFUSE LARGE B-CELL LYMPHOMA STAGE IV
     Dosage: 6 CYCLES
     Route: 065
  7. PREDNISOLONE. [Suspect]
     Active Substance: PREDNISOLONE
     Indication: DIFFUSE LARGE B-CELL LYMPHOMA STAGE IV
     Dosage: 6 CYCLES
     Route: 065
  8. RITUXIMAB (UNKNOWN) [Suspect]
     Active Substance: RITUXIMAB
     Indication: DIFFUSE LARGE B-CELL LYMPHOMA STAGE IV
     Dosage: 6 CYCLES
     Route: 065
  9. DEXAMETHASONE. [Suspect]
     Active Substance: DEXAMETHASONE
     Indication: PALLIATIVE CARE
     Dosage: 3 CYCLES
     Route: 065
     Dates: start: 2017, end: 201810

REACTIONS (3)
  - Disease recurrence [Unknown]
  - Therapy partial responder [Unknown]
  - Drug intolerance [Unknown]

NARRATIVE: CASE EVENT DATE: 201808
